FAERS Safety Report 9654402 (Version 1)
Quarter: 2013Q4

REPORT INFORMATION
  Report Type: Report from Study
  Country: BR (occurrence: BR)
  Receive Date: 20131029
  Receipt Date: 20131029
  Transmission Date: 20140711
  Serious: Yes (Other)
  Sender: FDA-Public Use
  Company Number: PHHY2013BR120150

PATIENT
  Age: 62 Year
  Sex: Female

DRUGS (9)
  1. DIOVAN [Suspect]
     Indication: HYPERTENSION
     Dosage: 1 DF (160 MG), DAILY
     Route: 048
  2. DIOVAN [Suspect]
     Dosage: 1 DF (320 MG), DAILY
     Route: 048
  3. AMLODIPINE [Suspect]
  4. LOSARTAN [Suspect]
     Indication: BLOOD PRESSURE ABNORMAL
     Dosage: 50 MG, UNK
  5. LOSARTAN [Suspect]
     Dosage: 2 DF (50 MG), DAILY
     Route: 048
  6. DIAZEPAM [Suspect]
     Indication: ANXIETY
     Dosage: 10 MG, UNK
     Dates: start: 20071220
  7. CLONAZEPAM [Suspect]
     Indication: NERVOUSNESS
     Dosage: 1 DF (2 MG), DAILY
     Route: 048
  8. CLONAZEPAM [Suspect]
     Indication: SLEEP DISORDER
  9. CLONAZEPAM [Suspect]
     Indication: DISTURBANCE IN SOCIAL BEHAVIOUR

REACTIONS (16)
  - Breast cancer [Recovered/Resolved]
  - Gastric ulcer [Unknown]
  - Blood pressure inadequately controlled [Not Recovered/Not Resolved]
  - Blood pressure increased [Not Recovered/Not Resolved]
  - Tension [Not Recovered/Not Resolved]
  - Nervousness [Not Recovered/Not Resolved]
  - Depression [Not Recovered/Not Resolved]
  - Gastric disorder [Recovered/Resolved]
  - Sleep disorder [Not Recovered/Not Resolved]
  - Fatigue [Not Recovered/Not Resolved]
  - Abdominal pain upper [Recovered/Resolved]
  - Vomiting [Recovered/Resolved]
  - Diarrhoea [Recovered/Resolved]
  - Arthralgia [Not Recovered/Not Resolved]
  - Asthenia [Not Recovered/Not Resolved]
  - Drug ineffective [Not Recovered/Not Resolved]
